FAERS Safety Report 5598386-8 (Version None)
Quarter: 2008Q1

REPORT INFORMATION
  Report Type: 
  Country: None (occurrence: None)
  Receive Date: 20080116
  Receipt Date: 20080107
  Transmission Date: 20080703
  Serious: Yes (Other)
  Sender: FDA-Public Use
  Company Number: 2007AP001515

PATIENT

DRUGS (2)
  1. CEFTRIAXONE [Suspect]
     Dosage: 1 GM; 1X
  2. CEFTRIAXONE [Suspect]
     Dosage: 1 GM; 1X;

REACTIONS (1)
  - HYPERPYREXIA [None]
